FAERS Safety Report 16905530 (Version 2)
Quarter: 2019Q4

REPORT INFORMATION
  Report Type: Spontaneous
  Country: MX (occurrence: MX)
  Receive Date: 20191010
  Receipt Date: 20191209
  Transmission Date: 20200122
  Serious: Yes (Other)
  Sender: FDA-Public Use
  Company Number: MX-BIOGEN-2019BI00794375

PATIENT
  Age: 23 Year
  Sex: Female
  Weight: 65 kg

DRUGS (1)
  1. TYSABRI [Suspect]
     Active Substance: NATALIZUMAB
     Indication: MULTIPLE SCLEROSIS
     Dosage: INFUSED OVER 1 HOUR
     Route: 042
     Dates: start: 2016

REACTIONS (1)
  - Hepatitis B reactivation [Not Recovered/Not Resolved]

NARRATIVE: CASE EVENT DATE: 2019
